FAERS Safety Report 7979194-7 (Version None)
Quarter: 2011Q4

REPORT INFORMATION
  Report Type: 
  Country: None (occurrence: None)
  Receive Date: 20111129
  Receipt Date: 20110826
  Transmission Date: 20120403
  Serious: Yes (Other)
  Sender: FDA-Public Use
  Company Number: PHHY2011US56008

PATIENT
  Age: 5 Year
  Sex: Female

DRUGS (8)
  1. BACTRIM [Concomitant]
  2. AFINITOR [Suspect]
     Indication: TUBEROUS SCLEROSIS
     Dosage: 5 MG, DAILY, ORAL, 2.5 MG, DAILY, ORAL, 2.5 MG, THREE TIMES A WEEK, ORAL, 2.5 MG, THREE TIMES A WEEK
     Route: 048
     Dates: start: 20110722
  3. AFINITOR [Suspect]
     Indication: TUBEROUS SCLEROSIS
     Dosage: 5 MG, DAILY, ORAL, 2.5 MG, DAILY, ORAL, 2.5 MG, THREE TIMES A WEEK, ORAL, 2.5 MG, THREE TIMES A WEEK
     Route: 048
     Dates: start: 20110608
  4. DEPAKOTE [Concomitant]
  5. RISPERDAL [Concomitant]
  6. THORAZINE [Concomitant]
  7. TRAZODONE HCL [Concomitant]
  8. ALBUTEROL [Concomitant]

REACTIONS (2)
  - INSOMNIA [None]
  - PNEUMONIA [None]
